FAERS Safety Report 7568270-9 (Version None)
Quarter: 2011Q2

REPORT INFORMATION
  Report Type: 
  Country: None (occurrence: None)
  Receive Date: 20110617
  Receipt Date: 20110608
  Transmission Date: 20111010
  Serious: Yes (Hospitalization)
  Sender: FDA-Public Use
  Company Number: 2011001830

PATIENT
  Age: 49 Year
  Sex: Male

DRUGS (7)
  1. DEXAMETHASONE [Concomitant]
  2. DOCETAXEL [Suspect]
     Indication: LIP AND/OR ORAL CAVITY CANCER RECURRENT
     Dosage: 75 MG/M2,Q3W, IV NOS
     Route: 042
     Dates: start: 20110412
  3. LOPERAMIDE [Concomitant]
  4. TARCEVA [Suspect]
     Indication: LIP AND/OR ORAL CAVITY CANCER RECURRENT
     Dosage: 150 MG, UID/QD, ORAL
     Route: 048
     Dates: start: 20110412
  5. CISPLATIN [Suspect]
     Indication: LIP AND/OR ORAL CAVITY CANCER RECURRENT
     Dosage: 75MGG/M2, Q3W, IV
     Route: 042
     Dates: start: 20110412
  6. ZOFRAN [Concomitant]
  7. PROCHLORPERAZINE MALEATE (PROCHLORPERAZINE MALEATE) [Concomitant]

REACTIONS (9)
  - DIARRHOEA [None]
  - FATIGUE [None]
  - DECREASED APPETITE [None]
  - VOMITING [None]
  - PYREXIA [None]
  - WHITE BLOOD CELL COUNT INCREASED [None]
  - HYPONATRAEMIA [None]
  - DEHYDRATION [None]
  - NAUSEA [None]
